FAERS Safety Report 8129027-3 (Version None)
Quarter: 2012Q1

REPORT INFORMATION
  Report Type: 
  Country: None (occurrence: None)
  Receive Date: 20120210
  Receipt Date: 20110808
  Transmission Date: 20120608
  Serious: No
  Sender: FDA-Public Use
  Company Number: US-BRISTOL-MYERS SQUIBB COMPANY-15954118

PATIENT
  Sex: Female

DRUGS (3)
  1. ARAVA [Suspect]
  2. GOLD [Suspect]
  3. ORENCIA [Suspect]

REACTIONS (1)
  - PITYRIASIS LICHENOIDES ET VARIOLIFORMIS ACUTA [None]
